FAERS Safety Report 26191440 (Version 2)
Quarter: 2025Q4

REPORT INFORMATION
  Report Type: Spontaneous
  Country: EU (occurrence: EU)
  Receive Date: 20251223
  Receipt Date: 20251226
  Transmission Date: 20260118
  Serious: Yes (Life-Threatening, Hospitalization, Other)
  Sender: NOVARTIS
  Company Number: EU-ABDI IBRAHIM-AI2025IT000506

PATIENT
  Age: 16 Year
  Sex: Female

DRUGS (1)
  1. DEFERASIROX [Suspect]
     Active Substance: DEFERASIROX
     Indication: Sickle cell anaemia
     Dosage: UNK
     Route: 065

REACTIONS (19)
  - Coma [Recovering/Resolving]
  - Hyperammonaemic encephalopathy [Recovering/Resolving]
  - Fanconi syndrome acquired [Recovering/Resolving]
  - Renal failure [Recovering/Resolving]
  - Azotaemia [Recovering/Resolving]
  - Renal tubular disorder [Recovering/Resolving]
  - Mitochondrial cytopathy [Recovering/Resolving]
  - Sensory disturbance [Recovering/Resolving]
  - Vomiting [Recovering/Resolving]
  - Pyrexia [Recovering/Resolving]
  - Acidosis hyperchloraemic [Recovering/Resolving]
  - C-reactive protein increased [Recovering/Resolving]
  - Procalcitonin increased [Recovering/Resolving]
  - Aspartate aminotransferase abnormal [Recovering/Resolving]
  - Alanine aminotransferase abnormal [Recovering/Resolving]
  - International normalised ratio abnormal [Recovering/Resolving]
  - Blood creatinine abnormal [Recovering/Resolving]
  - Ammonia increased [Recovering/Resolving]
  - Urea cycle disorder [Recovering/Resolving]
